FAERS Safety Report 19065416 (Version 1)
Quarter: 2021Q1

REPORT INFORMATION
  Report Type: Spontaneous
  Country: CA (occurrence: CA)
  Receive Date: 20210327
  Receipt Date: 20210327
  Transmission Date: 20210420
  Serious: Yes (Hospitalization)
  Sender: FDA-Public Use
  Company Number: CA-ROCHE-2796383

PATIENT
  Age: 68 Year
  Sex: Female
  Weight: 65 kg

DRUGS (6)
  1. PERINDOPRIL [Concomitant]
     Active Substance: PERINDOPRIL
  2. ALECENSARO [Suspect]
     Active Substance: ALECTINIB
     Indication: LUNG NEOPLASM MALIGNANT
     Dosage: FOR 36 DAYS
     Route: 048
  3. APO HYDRO [Suspect]
     Active Substance: HYDROCHLOROTHIAZIDE
     Indication: OEDEMA
     Dosage: FOR 15 DAYS
     Route: 048
  4. MULTIPLE VITAMINS [Concomitant]
     Active Substance: VITAMINS
  5. AMLODIPINE [Concomitant]
     Active Substance: AMLODIPINE BESYLATE
  6. METFORMIN [Concomitant]
     Active Substance: METFORMIN HYDROCHLORIDE

REACTIONS (5)
  - Nausea [Unknown]
  - Blood urea abnormal [Unknown]
  - Petechiae [Unknown]
  - Blood creatinine increased [Unknown]
  - Vomiting [Unknown]
